FAERS Safety Report 15612161 (Version 6)
Quarter: 2020Q3

REPORT INFORMATION
  Report Type: Report from Study
  Country: BE (occurrence: BE)
  Receive Date: 20181113
  Receipt Date: 20200924
  Transmission Date: 20201102
  Serious: Yes (Hospitalization)
  Sender: FDA-Public Use
  Company Number: BE-ROCHE-2161461

PATIENT
  Age: 75 Year
  Sex: Male

DRUGS (5)
  1. IXAZOMIB CITRATE [Suspect]
     Active Substance: IXAZOMIB CITRATE
     Indication: WALDENSTROM^S MACROGLOBULINAEMIA
     Dosage: THE MOST RECENT DOSE OF IXAZOMIB CITRATE PRIOR TO ONSET OF DEHYDRATION (FIRST EPISODE) WAS ON 23/JUL
     Route: 065
     Dates: start: 20180423
  2. IXAZOMIB CITRATE [Suspect]
     Active Substance: IXAZOMIB CITRATE
     Route: 065
     Dates: start: 20200716
  3. DEXAMETHASONE. [Suspect]
     Active Substance: DEXAMETHASONE
     Indication: WALDENSTROM^S MACROGLOBULINAEMIA
     Dosage: THE MOST RECENT DOSE OF DEXAMATHASONE PRIOR TO ONSET OF DEHYDRATION (FIRST EPISODE) WAS ON 23/JUL/20
     Route: 065
     Dates: start: 20180423
  4. DEXAMETHASONE. [Suspect]
     Active Substance: DEXAMETHASONE
     Route: 065
     Dates: start: 20200716
  5. RITUXIMAB. [Suspect]
     Active Substance: RITUXIMAB
     Indication: WALDENSTROM^S MACROGLOBULINAEMIA
     Dosage: THE MOST RECENT DOSE OF RITUXIMAB PRIOR TO ONSET OF DEHYDRATION (FIRST EPISODE) WAS ON 16/JUL/2018 (
     Route: 042
     Dates: start: 20180619

REACTIONS (1)
  - Dehydration [Recovered/Resolved]

NARRATIVE: CASE EVENT DATE: 20180726
